FAERS Safety Report 7896435-5 (Version None)
Quarter: 2011Q4

REPORT INFORMATION
  Report Type: 
  Country: None (occurrence: None)
  Receive Date: 20111106
  Receipt Date: 20110909
  Transmission Date: 20120403
  Serious: No
  Sender: FDA-Public Use
  Company Number: US-AMGEN-USASP2011046287

PATIENT
  Age: 56 Year
  Sex: Female

DRUGS (4)
  1. PREDNISONE [Concomitant]
  2. METHOTREXATE [Concomitant]
  3. ENBREL [Suspect]
     Indication: RHEUMATOID ARTHRITIS
     Dosage: 50 MG, QWK
     Dates: start: 20110601
  4. FOLIC ACID [Concomitant]
     Dosage: UNK

REACTIONS (1)
  - INCREASED TENDENCY TO BRUISE [None]
